FAERS Safety Report 14918330 (Version 1)
Quarter: 2018Q2

REPORT INFORMATION
  Report Type: Spontaneous
  Country: JP (occurrence: JP)
  Receive Date: 20180521
  Receipt Date: 20180521
  Transmission Date: 20180711
  Serious: Yes (Other)
  Sender: FDA-Public Use
  Company Number: PHHY2014JP033889

PATIENT
  Sex: Female

DRUGS (4)
  1. NEORAL [Suspect]
     Active Substance: CYCLOSPORINE
     Indication: APLASTIC ANAEMIA
     Dosage: 200 MG, QD
     Route: 048
  2. ANTITHYMOCYTE IMMUNOGLOBULIN (RABBIT) [Concomitant]
     Active Substance: LAPINE T-LYMPHOCYTE IMMUNE GLOBULIN
     Indication: APLASTIC ANAEMIA
     Dosage: UNK
     Route: 065
  3. GRAN [Concomitant]
     Active Substance: FILGRASTIM
     Indication: APLASTIC ANAEMIA
     Dosage: UNK
     Route: 065
  4. ELTROMBOPAG [Suspect]
     Active Substance: ELTROMBOPAG
     Indication: APLASTIC ANAEMIA
     Dosage: UNK
     Route: 048

REACTIONS (13)
  - Blood beta-D-glucan increased [Unknown]
  - Full blood count decreased [Unknown]
  - Pneumonia [Unknown]
  - Headache [Recovered/Resolved]
  - Renal impairment [Unknown]
  - Gingival swelling [Unknown]
  - Anaemia [Unknown]
  - Aplastic anaemia [Unknown]
  - Drug ineffective [Unknown]
  - Pyrexia [Unknown]
  - Disease progression [Unknown]
  - Brain abscess [Recovered/Resolved]
  - Bone marrow failure [Unknown]
